FAERS Safety Report 5140916-4 (Version None)
Quarter: 2006Q4

REPORT INFORMATION
  Report Type: 
  Country: None (occurrence: None)
  Receive Date: 20060914
  Receipt Date: 20050808
  Transmission Date: 20070319
  Serious: Yes (Other)
  Sender: FDA-Public Use
  Company Number: PHEH2005US08113

PATIENT
  Age: 56 Year
  Sex: Female
  Weight: 49.4 kg

DRUGS (7)
  1. DIOVAN [Suspect]
     Indication: HYPERTENSION
     Dosage: SEE IMAGE
     Dates: start: 20050201, end: 20050601
  2. LIPITOR [Suspect]
  3. PLAVIX [Concomitant]
  4. NEXIUM [Concomitant]
  5. ATENOLOL [Concomitant]
  6. ESTROGENS SOL/INJ [Concomitant]
  7. ASPIRIN [Concomitant]

REACTIONS (3)
  - ALANINE AMINOTRANSFERASE INCREASED [None]
  - ASPARTATE AMINOTRANSFERASE INCREASED [None]
  - BLOOD ALKALINE PHOSPHATASE INCREASED [None]
